FAERS Safety Report 11009159 (Version 1)
Quarter: 2015Q2

REPORT INFORMATION
  Report Type: Spontaneous
  Country: DE (occurrence: None)
  Receive Date: 20150408
  Receipt Date: 20150408
  Transmission Date: 20150821
  Serious: Yes (Death)
  Sender: FDA-Public Use
  Company Number: NSR_02039_2015

PATIENT
  Age: 38 Year
  Sex: Male

DRUGS (22)
  1. HYDROXYZINE [Suspect]
     Active Substance: HYDROXYZINE\HYDROXYZINE HYDROCHLORIDE
     Indication: PRODUCT USED FOR UNKNOWN INDICATION
     Dosage: DF (NOT THE PRESCRIBED AMOUNT) (NOT OTHERWISE SPECIFIED)
     Route: 042
  2. LEVAMISOLE (LEVAMISOLE) [Suspect]
     Active Substance: LEVAMISOLE
     Indication: PRODUCT USED FOR UNKNOWN INDICATION
     Dosage: DF (NOT THE PRESCRIBED AMOUNT) (NOT OTHERWISE SPECIFIED)
     Route: 042
  3. PAPAVERINE (PAPAVERINE) [Suspect]
     Active Substance: PAPAVERINE
     Indication: PRODUCT USED FOR UNKNOWN INDICATION
     Dosage: DF (NOT THE PRESCRIBED AMOUNT) (NOT OTHERWISE SPECIFIED)
     Route: 042
  4. COCAINE (COCAINE) [Suspect]
     Active Substance: COCAINE
     Indication: PRODUCT USED FOR UNKNOWN INDICATION
     Dosage: DF (NOT THE PRESCRIBED AMOUNT) (NOT OTHERWISE SPECIFIED)
     Route: 042
  5. NORDAZEPAM (NORDAZEPAM) [Suspect]
     Active Substance: NORDAZEPAM
     Indication: PRODUCT USED FOR UNKNOWN INDICATION
     Dosage: DF (NOT THE PRESCRIBED AMOUNT) (NOT OTHERWISE SPECIFIED)
     Route: 042
  6. COCAETHYLENE [Suspect]
     Active Substance: COCAETHYLENE
     Indication: PRODUCT USED FOR UNKNOWN INDICATION
     Dosage: DF (NOT THE PRESCRIBED AMOUNT) (NOT OTHERWISE SPECIFIED)
     Route: 042
  7. PARACETAMOL (PARACETAMOL) [Suspect]
     Active Substance: ACETAMINOPHEN
     Indication: PRODUCT USED FOR UNKNOWN INDICATION
     Dosage: DF (NOT THE PRESCRIBED AMOUNT) (NOT OTHERWISE SPECIFIED)
     Route: 042
  8. NICOTINE (NICOTINE) [Suspect]
     Active Substance: NICOTINE
     Indication: PRODUCT USED FOR UNKNOWN INDICATION
     Dosage: DF (NOT THE PRESCRIBED AMOUNT) (NOT OTHERWISE SPECIFIED)
     Route: 042
  9. DILTIAZEM (DILTIAZEM) [Suspect]
     Active Substance: DILTIAZEM
     Indication: PRODUCT USED FOR UNKNOWN INDICATION
     Dosage: DF (NOT THE PRESCRIBED AMOUNT) (NOT OTHERWISE SPECIFIED)
     Route: 042
  10. COTININE [Suspect]
     Active Substance: COTININE
     Indication: PRODUCT USED FOR UNKNOWN INDICATION
     Dosage: DF (NOT THE PRESCRIBED AMOUNT) (NOT OTHERWISE SPECIFIED)
     Route: 042
  11. NOSCAPINE (NOSCAPINE) [Suspect]
     Active Substance: NOSCAPINE
     Indication: PRODUCT USED FOR UNKNOWN INDICATION
     Dosage: DF (NOT THE PRESCRIBED AMOUNT) (NOT OTHERWISE SPECIFIED)
     Route: 042
  12. THEOPHYLLINE (THEOPHYLLINE) [Suspect]
     Active Substance: THEOPHYLLINE ANHYDROUS
     Indication: PRODUCT USED FOR UNKNOWN INDICATION
     Dosage: DF (NOT THE PRESCRIBED AMOUNT) (NOT OTHERWISE SPECIFIED)
     Route: 042
  13. CODEINE [Suspect]
     Active Substance: CODEINE
     Indication: PRODUCT USED FOR UNKNOWN INDICATION
     Dosage: DF (NOT THE PRESCRIBED AMOUNT) (NOT OTHERWISE SPECIFIED)
     Route: 042
  14. MORPHINE (MORPHINE) [Suspect]
     Active Substance: MORPHINE
     Indication: PRODUCT USED FOR UNKNOWN INDICATION
     Dosage: DF (NOT THE PRESCRIBED AMOUNT) (NOT OTHERWISE SPECIFIED)
     Route: 042
  15. DIAZEPAM (DIAZEPAM) [Suspect]
     Active Substance: DIAZEPAM
     Indication: PRODUCT USED FOR UNKNOWN INDICATION
     Dosage: DF (NOT THE PRESCRIBED AMOUNT) (NOT OTHERWISE SPECIFIED)
     Route: 042
  16. THEOBROMINE (THEOBROMINE) [Suspect]
     Active Substance: THEOBROMINE
     Indication: PRODUCT USED FOR UNKNOWN INDICATION
     Dosage: DF (NOT THE PRESCRIBED AMOUNT) (NOT OTHERWISE SPECIFIED)
     Route: 042
  17. BENZOYLECGONINE (BENZOYLECGONINE) [Suspect]
     Active Substance: BENZOYLECGONINE
     Indication: PRODUCT USED FOR UNKNOWN INDICATION
     Dosage: DF (NOT THE PRESCRIBED AMOUNT) (NOT OTHERWISE SPECIFIED)
     Route: 042
  18. PHENACETIN (PHENACETIN) [Suspect]
     Active Substance: PHENACETIN
     Indication: PRODUCT USED FOR UNKNOWN INDICATION
     Dosage: DF (NOT THE PRESCRIBED AMOUNT) (NOT OTHERWISE SPECIFIED)
     Route: 042
  19. LIDOCAINE (LIDOCAINE) [Suspect]
     Active Substance: LIDOCAINE
     Indication: PRODUCT USED FOR UNKNOWN INDICATION
     Dosage: DF (NOT THE PRESCRIBED AMOUNT) (NOT OTHERWISE SPECIFIED)
     Route: 042
  20. ALCOHOL (ALCOHOL) [Suspect]
     Active Substance: ALCOHOL
     Indication: PRODUCT USED FOR UNKNOWN INDICATION
     Dosage: DF (NOT THE PRESCRIBED AMOUNT) (NOT OTHERWISE SPECIFIED)
     Route: 042
  21. MONOACETYLMORPHINE [Suspect]
     Active Substance: 6-ACETYLMORPHINE
     Indication: PRODUCT USED FOR UNKNOWN INDICATION
     Dosage: DF (NOT THE PRESCRIBED AMOUNT) (NOT OTHERWISE SPECIFIED)
     Route: 042
  22. CAFFEINE (CAFFEINE) [Suspect]
     Active Substance: CAFFEINE
     Indication: PRODUCT USED FOR UNKNOWN INDICATION
     Dosage: DF (NOT THE PRESCRIBED AMOUNT) (NOT OTHERWISE SPECIFIED)
     Route: 042

REACTIONS (2)
  - Overdose [None]
  - Accidental death [None]
